FAERS Safety Report 10614312 (Version 1)
Quarter: 2014Q4

REPORT INFORMATION
  Report Type: Spontaneous
  Country: US (occurrence: US)
  Receive Date: 20141128
  Receipt Date: 20141128
  Transmission Date: 20150529
  Serious: Yes (Hospitalization)
  Sender: FDA-Public Use
  Company Number: PHEH2014US023527

PATIENT
  Sex: Female

DRUGS (1)
  1. EXJADE [Suspect]
     Active Substance: DEFERASIROX
     Indication: SICKLE CELL ANAEMIA
     Dosage: 1500 MG, QD (500 MG X 3 TABLETS)
     Route: 048

REACTIONS (4)
  - Renal failure [Unknown]
  - Vomiting [Unknown]
  - Sepsis [Unknown]
  - Haemoglobin abnormal [Unknown]
